FAERS Safety Report 7843809-4 (Version None)
Quarter: 2011Q4

REPORT INFORMATION
  Report Type: 
  Country: None (occurrence: None)
  Receive Date: 20111025
  Receipt Date: 20111012
  Transmission Date: 20120403
  Serious: Yes (Hospitalization)
  Sender: FDA-Public Use
  Company Number: US-BAYER-2011-050339

PATIENT
  Sex: Female
  Weight: 68.027 kg

DRUGS (3)
  1. ACETAMINOPHEN [Concomitant]
     Dosage: 325 MG, UNK
  2. MOTRIN [Concomitant]
     Dosage: 400 MG, UNK
  3. YAZ [Suspect]
     Indication: ACNE
     Dosage: UNK
     Dates: start: 20040101, end: 20090101

REACTIONS (6)
  - CHOLELITHIASIS [None]
  - GALLBLADDER CHOLESTEROLOSIS [None]
  - INJURY [None]
  - GALLBLADDER DISORDER [None]
  - PAIN [None]
  - CHOLECYSTITIS CHRONIC [None]
